FAERS Safety Report 21575431 (Version 1)
Quarter: 2022Q4

REPORT INFORMATION
  Report Type: Spontaneous
  Country: PK (occurrence: PK)
  Receive Date: 20221110
  Receipt Date: 20221110
  Transmission Date: 20230113
  Serious: Yes (Other)
  Sender: FDA-Public Use
  Company Number: PK-002147023-NVSC2022PK223076

PATIENT
  Sex: Male

DRUGS (1)
  1. COSENTYX [Suspect]
     Active Substance: SECUKINUMAB
     Indication: Product used for unknown indication
     Dosage: UNK UNK, QW (5 LOADING DOSE OF DOUBLE VIAL DOSE )
     Route: 065
     Dates: start: 202110

REACTIONS (5)
  - Sepsis [Unknown]
  - Septic shock [Unknown]
  - Symptom recurrence [Unknown]
  - Pigmentation disorder [Unknown]
  - Nail disorder [Unknown]
